FAERS Safety Report 4447858-8 (Version None)
Quarter: 2004Q3

REPORT INFORMATION
  Report Type: 
  Country: None (occurrence: None)
  Receive Date: 20040812
  Receipt Date: 20040601
  Transmission Date: 20050211
  Serious: No
  Sender: FDA-Public Use
  Company Number: USA040668941

PATIENT
  Age: 71 Year
  Sex: Male
  Weight: 95 kg

DRUGS (4)
  1. CIALIS [Suspect]
     Indication: ERECTILE DYSFUNCTION
     Dosage: 10 MG AS NEEDED
     Dates: start: 20040501
  2. MONOPRIL [Concomitant]
  3. PROSCAR [Concomitant]
  4. TAMSULOSIN HYDROCHLORIDE [Concomitant]

REACTIONS (2)
  - LIBIDO DECREASED [None]
  - THERAPEUTIC RESPONSE DECREASED [None]
